FAERS Safety Report 26015631 (Version 1)
Quarter: 2025Q4

REPORT INFORMATION
  Report Type: Spontaneous
  Country: EU (occurrence: EU)
  Receive Date: 20251109
  Receipt Date: 20251109
  Transmission Date: 20260117
  Serious: Yes (Hospitalization)
  Sender: PRINSTON PHARMACEUTICAL
  Company Number: EU-PRINSTON PHARMACEUTICAL INC.-2025PRN00359

PATIENT
  Age: 71 Year
  Sex: Male

DRUGS (17)
  1. PEMETREXED DISODIUM [Suspect]
     Active Substance: PEMETREXED DISODIUM
     Indication: Non-small cell lung cancer stage IV
     Dosage: UNK ( WITH 4 CYCLES)
     Dates: start: 202402, end: 202404
  2. PEMETREXED DISODIUM [Suspect]
     Active Substance: PEMETREXED DISODIUM
     Dosage: 500 MG/M2 (AS MAINTENANCE TREATMENT EVERY 3 WEEKS)
     Dates: start: 202405
  3. PEMETREXED DISODIUM [Suspect]
     Active Substance: PEMETREXED DISODIUM
     Dosage: CUMULATIVE DOSE (4962.5 MG/M2) (FIFTH DOSE)
     Dates: start: 2024
  4. PEMETREXED DISODIUM [Suspect]
     Active Substance: PEMETREXED DISODIUM
     Dosage: CUMULATIVE DOSE (5962.5 MG) (SIXTH DOSE)
     Dates: start: 2024
  5. PEMETREXED DISODIUM [Suspect]
     Active Substance: PEMETREXED DISODIUM
     Dosage: CUMULATIVE DOSE (6962.5 MG) (SEVENTH DOSE)
     Dates: start: 2024
  6. BISOPROLOL FUMARATE [Suspect]
     Active Substance: BISOPROLOL FUMARATE
     Dosage: UNK
  7. TADALAFIL [Suspect]
     Active Substance: TADALAFIL
     Dosage: UNK (ONGOING FOR OVER A YEAR)
  8. ASPIRIN [Suspect]
     Active Substance: ASPIRIN
     Dosage: UNK
  9. AMLODIPINE\PERINDOPRIL [Suspect]
     Active Substance: AMLODIPINE\PERINDOPRIL
     Dosage: UNK
  10. ROSUVASTATIN [Suspect]
     Active Substance: ROSUVASTATIN
     Dosage: UNK
  11. LANSOPRAZOLE [Suspect]
     Active Substance: LANSOPRAZOLE
     Dosage: UNK (INITIATED SIX MONTHS EARLIER)
  12. PEMBROLIZUMAB [Concomitant]
     Active Substance: PEMBROLIZUMAB
     Dosage: WITH 4 CYCLES
     Dates: start: 202402, end: 202404
  13. PEMBROLIZUMAB [Concomitant]
     Active Substance: PEMBROLIZUMAB
     Dosage: EVERY 3 WEEKS
     Dates: start: 202405
  14. CARBOPLATIN [Concomitant]
     Active Substance: CARBOPLATIN
     Dosage: WITH 4 CYCLES
     Dates: start: 202402, end: 202404
  15. VITAMIN B12 [Concomitant]
     Active Substance: CYANOCOBALAMIN
     Dosage: UNK
  16. LEUCOVORIN [Concomitant]
     Active Substance: LEUCOVORIN\LEUCOVORIN CALCIUM
     Dosage: UNK
  17. PREDNISONE [Concomitant]
     Active Substance: PREDNISONE
     Dosage: UNK

REACTIONS (3)
  - Pseudocellulitis [Recovered/Resolved]
  - Drug interaction [Unknown]
  - Toxicity to various agents [Recovered/Resolved]

NARRATIVE: CASE EVENT DATE: 20240101
